FAERS Safety Report 8714899 (Version 2)
Quarter: 2012Q4

REPORT INFORMATION
  Report Type: Report from Study
  Country: ES (occurrence: ES)
  Receive Date: 20120809
  Receipt Date: 20120918
  Transmission Date: 20130627
  Serious: Yes (Death, Hospitalization)
  Sender: FDA-Public Use
  Company Number: ES-TEVA-352407USA

PATIENT
  Age: 68 Year
  Sex: Female

DRUGS (8)
  1. TREANDA [Suspect]
     Indication: MULTIPLE MYELOMA
     Route: 042
     Dates: start: 20120314
  2. PREDNISONE [Suspect]
     Indication: MULTIPLE MYELOMA
     Dates: start: 20120314
  3. BORTEZOMIB [Suspect]
     Indication: MULTIPLE MYELOMA
     Dates: start: 20081006, end: 200811
  4. ERYTHROMYCIN [Concomitant]
     Dates: start: 20120305
  5. LEVOFLOXACIN [Concomitant]
     Dates: start: 20120410
  6. NEOMYCIN [Concomitant]
     Dates: start: 20120326
  7. TOBRAMYCIN [Concomitant]
     Dates: start: 20120305
  8. ACENOCOUMAROL [Concomitant]
     Dates: start: 20120305

REACTIONS (3)
  - Plasma cell myeloma [Fatal]
  - Lung infection [Fatal]
  - Back pain [Unknown]
